FAERS Safety Report 6932678-2 (Version None)
Quarter: 2010Q3

REPORT INFORMATION
  Report Type: 
  Country: None (occurrence: None)
  Receive Date: 20100819
  Receipt Date: 20100811
  Transmission Date: 20110219
  Serious: Yes (Death, Hospitalization)
  Sender: FDA-Public Use
  Company Number: PH-BAXTER-2010BH021405

PATIENT
  Age: 82 Year
  Sex: Male

DRUGS (1)
  1. DIANEAL [Suspect]
     Indication: PERITONEAL DIALYSIS
     Route: 033
     Dates: start: 20100130, end: 20100421

REACTIONS (3)
  - ASTHENIA [None]
  - CARDIOGENIC SHOCK [None]
  - DYSPNOEA [None]
